FAERS Safety Report 17435421 (Version 1)
Quarter: 2020Q1

REPORT INFORMATION
  Report Type: Spontaneous
  Country: EC (occurrence: EC)
  Receive Date: 20200219
  Receipt Date: 20200219
  Transmission Date: 20200409
  Serious: Yes (Death, Other)
  Sender: FDA-Public Use
  Company Number: EC-AMGEN-ECUSP2020026932

PATIENT
  Age: 47 Year
  Sex: Male

DRUGS (1)
  1. NEULASTIM [Suspect]
     Active Substance: PEGFILGRASTIM
     Indication: NON-HODGKIN^S LYMPHOMA
     Dosage: 6 MILLIGRAM, CYCLICAL
     Route: 058
     Dates: start: 20190604, end: 20190625

REACTIONS (1)
  - Death [Fatal]

NARRATIVE: CASE EVENT DATE: 2019
